FAERS Safety Report 19271446 (Version 2)
Quarter: 2021Q2

REPORT INFORMATION
  Report Type: Spontaneous
  Country: BR (occurrence: BR)
  Receive Date: 20210518
  Receipt Date: 20210527
  Transmission Date: 20210717
  Serious: Yes (Other)
  Sender: FDA-Public Use
  Company Number: BR-PFIZER INC-2021503707

PATIENT
  Sex: Female

DRUGS (1)
  1. DEPO?PROVERA [Suspect]
     Active Substance: MEDROXYPROGESTERONE ACETATE
     Indication: LEIOMYOMA
     Dosage: 150 MG, EVERY 3 MONTHS (QUARTERLY)
     Route: 030
     Dates: start: 202012, end: 202103

REACTIONS (4)
  - Injection site erythema [Unknown]
  - Off label use [Unknown]
  - Injection site nodule [Recovered/Resolved]
  - Injection site pain [Unknown]

NARRATIVE: CASE EVENT DATE: 202103
